FAERS Safety Report 6305542-X (Version None)
Quarter: 2009Q3

REPORT INFORMATION
  Report Type: 
  Country: None (occurrence: None)
  Receive Date: 20090811
  Receipt Date: 20090727
  Transmission Date: 20100115
  Serious: Yes (Death)
  Sender: FDA-Public Use
  Company Number: US-GENENTECH-288014

PATIENT

DRUGS (3)
  1. AVASTIN [Suspect]
     Indication: NON-HODGKIN'S LYMPHOMA
     Dosage: 10 MG/M2, Q2W
     Route: 042
  2. ACETAMINOPHEN [Concomitant]
     Indication: PREMEDICATION
  3. DIPHENHYDRAMINE HCL [Concomitant]
     Indication: PREMEDICATION

REACTIONS (14)
  - ANAEMIA [None]
  - DEATH [None]
  - DECREASED APPETITE [None]
  - DEHYDRATION [None]
  - DYSPNOEA [None]
  - FATIGUE [None]
  - HEADACHE [None]
  - HYPERTENSION [None]
  - HYPONATRAEMIA [None]
  - LYMPHOPENIA [None]
  - NAUSEA [None]
  - NEUTROPENIA [None]
  - PULMONARY EMBOLISM [None]
  - THROMBOCYTOPENIA [None]
